FAERS Safety Report 16132690 (Version 3)
Quarter: 2019Q2

REPORT INFORMATION
  Report Type: Report from Study
  Country: US (occurrence: US)
  Receive Date: 20190329
  Receipt Date: 20190405
  Transmission Date: 20190711
  Serious: Yes (Death)
  Sender: FDA-Public Use
  Company Number: US-ROCHE-2292380

PATIENT
  Sex: Female

DRUGS (1)
  1. CELLCEPT [Suspect]
     Active Substance: MYCOPHENOLATE MOFETIL\MYCOPHENOLATE MOFETIL HYDROCHLORIDE
     Indication: INTERSTITIAL LUNG DISEASE
     Dosage: 500 MG 3 TABS BID
     Route: 048

REACTIONS (3)
  - Off label use [Fatal]
  - Death [Fatal]
  - Intentional product use issue [Fatal]
